FAERS Safety Report 11024906 (Version 1)
Quarter: 2015Q2

REPORT INFORMATION
  Report Type: Spontaneous
  Country: US (occurrence: US)
  Receive Date: 20150414
  Receipt Date: 20150414
  Transmission Date: 20150821
  Serious: No
  Sender: FDA-Public Use
  Company Number: US-BIOGENIDEC-2015BI032083

PATIENT
  Sex: Female

DRUGS (3)
  1. AVONEX [Suspect]
     Active Substance: INTERFERON BETA-1A
     Indication: PRODUCT USED FOR UNKNOWN INDICATION
     Route: 030
  2. BETASERON [Concomitant]
     Active Substance: INTERFERON BETA-1B
  3. COPAXONE [Concomitant]
     Active Substance: GLATIRAMER ACETATE

REACTIONS (6)
  - Multiple sclerosis [Unknown]
  - Multiple sclerosis relapse [Unknown]
  - Aphasia [Unknown]
  - Depression [Unknown]
  - Amnesia [Unknown]
  - Suicidal ideation [Unknown]
